FAERS Safety Report 13269657 (Version 1)
Quarter: 2017Q1

REPORT INFORMATION
  Report Type: Spontaneous
  Country: FR (occurrence: FR)
  Receive Date: 20170224
  Receipt Date: 20170224
  Transmission Date: 20170428
  Serious: Yes (Hospitalization)
  Sender: FDA-Public Use
  Company Number: FR-ASTRAZENECA-2017SE19111

PATIENT
  Age: 959 Month
  Sex: Male

DRUGS (4)
  1. INEXIUM [Suspect]
     Active Substance: ESOMEPRAZOLE
     Route: 048
     Dates: end: 20161115
  2. LASILIX FAIBLE [Suspect]
     Active Substance: FUROSEMIDE
     Route: 048
  3. LASILIX FAIBLE [Suspect]
     Active Substance: FUROSEMIDE
     Route: 048
  4. PLAVIX [Suspect]
     Active Substance: CLOPIDOGREL BISULFATE
     Route: 048
     Dates: end: 20161115

REACTIONS (6)
  - Hypocalcaemia [Recovered/Resolved]
  - Hypomagnesaemia [Recovered/Resolved]
  - Hypokalaemia [Recovered/Resolved]
  - Chest discomfort [Unknown]
  - Dyspnoea [Unknown]
  - Atrial fibrillation [Unknown]

NARRATIVE: CASE EVENT DATE: 201611
